FAERS Safety Report 13561197 (Version 4)
Quarter: 2017Q3

REPORT INFORMATION
  Report Type: Spontaneous
  Country: GB (occurrence: GB)
  Receive Date: 20170518
  Receipt Date: 20170809
  Transmission Date: 20171127
  Serious: Yes (Other)
  Sender: FDA-Public Use
  Company Number: GB-ABBVIE-17P-167-1980355-00

PATIENT
  Age: 3 Year
  Sex: Male

DRUGS (10)
  1. EPILIM [Suspect]
     Active Substance: VALPROATE SODIUM
     Dosage: INCREASED 1 WEEK LATER
     Route: 065
  2. EPILIM [Suspect]
     Active Substance: VALPROATE SODIUM
     Indication: PRODUCT USED FOR UNKNOWN INDICATION
     Route: 048
     Dates: start: 20170501
  3. EPILIM [Suspect]
     Active Substance: VALPROATE SODIUM
     Dosage: INCREASED 1 WEEK LATER
     Route: 065
  4. EPILIM [Suspect]
     Active Substance: VALPROATE SODIUM
     Dosage: INCREASED1 WEEK LATER
     Route: 065
  5. EPILIM [Interacting]
     Active Substance: VALPROATE SODIUM
     Route: 048
  6. EPILIM [Suspect]
     Active Substance: VALPROATE SODIUM
     Dosage: INCREASED 1 WEEK LATER
     Route: 065
     Dates: start: 20170509
  7. EPILIM [Suspect]
     Active Substance: VALPROATE SODIUM
     Dosage: INCREASED 1 WEEK LATER
     Route: 065
  8. EPILIM [Interacting]
     Active Substance: VALPROATE SODIUM
     Route: 048
     Dates: start: 20170509
  9. EPILIM [Suspect]
     Active Substance: VALPROATE SODIUM
     Indication: PRODUCT USED FOR UNKNOWN INDICATION
     Route: 065
     Dates: start: 20170324
  10. EPILIM [Suspect]
     Active Substance: VALPROATE SODIUM
     Route: 065

REACTIONS (10)
  - Seizure [Not Recovered/Not Resolved]
  - Respiratory disorder [Not Recovered/Not Resolved]
  - Dyskinesia [Not Recovered/Not Resolved]
  - Hypotonia [Not Recovered/Not Resolved]
  - Oral mucosal eruption [Recovered/Resolved]
  - Tremor [Unknown]
  - Fatigue [Unknown]
  - Drug interaction [Unknown]
  - Drug administered to patient of inappropriate age [Unknown]
  - Abdominal discomfort [Unknown]
